FAERS Safety Report 16463672 (Version 1)
Quarter: 2019Q2

REPORT INFORMATION
  Report Type: Other
  Country: IT (occurrence: IT)
  Receive Date: 20190621
  Receipt Date: 20190621
  Transmission Date: 20190711
  Serious: Yes (Other)
  Sender: FDA-Public Use
  Company Number: IT-APOTEX-2019AP016647

PATIENT
  Age: 16 Year
  Sex: Female

DRUGS (7)
  1. DEPAKIN [Suspect]
     Active Substance: VALPROATE SODIUM
     Indication: DRUG ABUSE
     Dosage: 1000 MG, (IN TOTAL)
     Route: 048
     Dates: start: 20190426, end: 20190426
  2. OLANZAPINE. [Suspect]
     Active Substance: OLANZAPINE
     Indication: DRUG ABUSE
     Dosage: 10 MG, (IN TOTAL)
     Route: 048
     Dates: start: 20190426, end: 20190426
  3. CARBAMAZEPINE. [Suspect]
     Active Substance: CARBAMAZEPINE
     Indication: DRUG ABUSE
     Dosage: 600 MG, (IN TOTAL)
     Route: 048
     Dates: start: 20190426, end: 20190426
  4. RISPERIDONE. [Suspect]
     Active Substance: RISPERIDONE
     Indication: DRUG ABUSE
     Dosage: 8 MG, (IN TOTAL)
     Route: 048
     Dates: start: 20190426, end: 20190426
  5. LITHIUM. [Suspect]
     Active Substance: LITHIUM
     Indication: DRUG ABUSE
     Dosage: 750 MG, (IN TOTAL)
     Route: 048
     Dates: start: 20190426, end: 20190426
  6. PROMAZINE HYDROCHLORIDE [Suspect]
     Active Substance: PROMAZINE HYDROCHLORIDE
     Indication: DRUG ABUSE
     Dosage: 50 GTT, (IN TOTAL)
     Route: 048
     Dates: start: 20190426, end: 20190426
  7. LORAZEPAM. [Suspect]
     Active Substance: LORAZEPAM
     Indication: DRUG ABUSE
     Dosage: 5 MG, (IN TOTAL)
     Route: 048
     Dates: start: 20190426, end: 20190426

REACTIONS (3)
  - Drug abuse [Recovering/Resolving]
  - Sopor [Recovering/Resolving]
  - Aphasia [Recovering/Resolving]

NARRATIVE: CASE EVENT DATE: 20190426
